FAERS Safety Report 13941077 (Version 1)
Quarter: 2017Q3

REPORT INFORMATION
  Report Type: Spontaneous
  Country: SE (occurrence: SE)
  Receive Date: 20170906
  Receipt Date: 20170906
  Transmission Date: 20171127
  Serious: Yes (Hospitalization)
  Sender: FDA-Public Use
  Company Number: SE-PFIZER INC-2017381400

PATIENT
  Age: 72 Year
  Sex: Female

DRUGS (9)
  1. FOLACIN /00024201/ [Concomitant]
     Active Substance: FOLIC ACID
     Dosage: UNK
  2. KALCIPOS-D [Concomitant]
     Active Substance: CALCIUM CARBONATE\CHOLECALCIFEROL
     Dosage: UNK
  3. BRUFEN RETARD [Concomitant]
     Active Substance: IBUPROFEN
     Dosage: UNK
  4. XELJANZ [Suspect]
     Active Substance: TOFACITINIB CITRATE
     Indication: RHEUMATOID ARTHRITIS
     Dosage: 5 MG, 2X/DAY
     Route: 048
     Dates: start: 20170724, end: 20170728
  5. TRAMADOL HEXAL [Concomitant]
     Active Substance: TRAMADOL
     Dosage: UNK
  6. ATENOLOL ACCORD [Concomitant]
     Dosage: UNK
  7. PREDNISOLON ALTERNOVA [Concomitant]
     Active Substance: PREDNISOLONE
     Dosage: UNK
  8. METHOTREXATE ORION [Concomitant]
     Active Substance: METHOTREXATE
     Dosage: UNK
  9. ALVEDON [Concomitant]
     Active Substance: ACETAMINOPHEN
     Dosage: UNK

REACTIONS (1)
  - Melaena [Recovered/Resolved]

NARRATIVE: CASE EVENT DATE: 20170728
